FAERS Safety Report 9701449 (Version 1)
Quarter: 2013Q4

REPORT INFORMATION
  Report Type: Spontaneous
  Country: US (occurrence: None)
  Receive Date: 20131119
  Receipt Date: 20131119
  Transmission Date: 20140711
  Serious: Yes (Congenital Anomaly)
  Sender: FDA-Public Use
  Company Number: 2013HINSPO0233

PATIENT
  Sex: Male
  Weight: 2.1 kg

DRUGS (3)
  1. LEVETIRACETAM [Suspect]
     Indication: CONVULSION
     Dosage: 2000 MG, BID, TRANSPLACENTAL
     Route: 064
  2. PENICILLIN G (PENICILLIN G) [Concomitant]
  3. BETAMETHASONE (BETAMETHASONE) ? [Concomitant]

REACTIONS (2)
  - Congenital musculoskeletal anomaly [None]
  - Maternal drugs affecting foetus [None]
